FAERS Safety Report 16175109 (Version 1)
Quarter: 2019Q2

REPORT INFORMATION
  Report Type: Spontaneous
  Country: NL (occurrence: NL)
  Receive Date: 20190409
  Receipt Date: 20190409
  Transmission Date: 20190711
  Serious: Yes (Other)
  Sender: FDA-Public Use
  Company Number: NL-MYLANLABS-2019M1032560

PATIENT
  Sex: Female
  Weight: 60 kg

DRUGS (1)
  1. ETHINYLESTRADIOL/LEVONORGESTREL [Suspect]
     Active Substance: ETHINYL ESTRADIOL\LEVONORGESTREL
     Indication: CONTRACEPTION
     Dosage: 3 WEKEN WEL, 1 WEEK NIET
     Route: 048
     Dates: start: 20070701

REACTIONS (4)
  - Nausea [Not Recovered/Not Resolved]
  - Chloasma [Not Recovered/Not Resolved]
  - Vomiting [Not Recovered/Not Resolved]
  - Mastitis bacterial [Recovered/Resolved]
